FAERS Safety Report 25477126 (Version 4)
Quarter: 2025Q4

REPORT INFORMATION
  Report Type: Report from Study
  Country: US (occurrence: US)
  Receive Date: 20250625
  Receipt Date: 20251010
  Transmission Date: 20260119
  Serious: Yes (Other)
  Sender: ACCORD
  Company Number: US-Accord-491371

PATIENT
  Age: 35 Year
  Sex: Female
  Weight: 87.04 kg

DRUGS (3)
  1. MYCOPHENOLIC ACID [Suspect]
     Active Substance: MYCOPHENOLIC ACID
     Indication: Uveitis
     Dosage: FREQUENCY: SIX TIMES DAILY
     Route: 048
     Dates: end: 20250609
  2. BIOTIN [Concomitant]
     Active Substance: BIOTIN
  3. VITAMIN C [Concomitant]
     Active Substance: ASCORBIC ACID

REACTIONS (4)
  - Maternal exposure before pregnancy [Unknown]
  - Maternal exposure during pregnancy [Unknown]
  - Off label use [Unknown]
  - Abortion spontaneous [Unknown]

NARRATIVE: CASE EVENT DATE: 20250101
